FAERS Safety Report 5757398-1 (Version None)
Quarter: 2008Q2

REPORT INFORMATION
  Report Type: 
  Country: None (occurrence: None)
  Receive Date: 20080603
  Receipt Date: 20080527
  Transmission Date: 20081010
  Serious: Yes (Hospitalization)
  Sender: FDA-Public Use
  Company Number: HK-AVENTIS-200718166GDDC

PATIENT
  Age: 44 Year
  Sex: Female

DRUGS (24)
  1. TAXOTERE [Suspect]
     Indication: BREAST CANCER
     Route: 042
     Dates: start: 20070713, end: 20070713
  2. ADRIAMYCIN PFS [Suspect]
     Indication: BREAST CANCER
     Route: 042
     Dates: start: 20070713, end: 20070713
  3. CYCLOPHOSPHAMIDE [Suspect]
     Indication: BREAST CANCER
     Route: 042
     Dates: start: 20070713, end: 20070713
  4. CIPROFLOXACIN HCL [Concomitant]
     Dosage: DOSE: TWO 250 MG TABLETS
     Route: 048
     Dates: start: 20070717, end: 20070726
  5. CIPROFLOXACIN HCL [Concomitant]
     Dosage: DOSE: TWO 250 MG TABLETS
     Route: 048
     Dates: start: 20070626, end: 20070705
  6. CIPROFLOXACIN HCL [Concomitant]
     Dosage: DOSE: TWO 250 MG TABLETS
     Route: 048
     Dates: start: 20070605, end: 20070614
  7. CIPROFLOXACIN HCL [Concomitant]
     Dosage: DOSE: TWO 250 MG TABLETS
     Route: 048
     Dates: start: 20070511, end: 20070520
  8. FILGRASTIM [Concomitant]
     Route: 058
     Dates: start: 20070716, end: 20070722
  9. FILGRASTIM [Concomitant]
     Route: 058
     Dates: start: 20070625, end: 20070701
  10. FILGRASTIM [Concomitant]
     Route: 058
     Dates: start: 20070531, end: 20070606
  11. FILGRASTIM [Concomitant]
     Route: 058
     Dates: start: 20070511, end: 20070517
  12. METOCLOPRAMIDE [Concomitant]
     Dosage: DOSE: 10 MG 15-30 MINS BEFORE MEALS THREE TIMES A DAY
     Route: 048
     Dates: start: 20070712, end: 20070801
  13. METOCLOPRAMIDE [Concomitant]
     Dosage: DOSE: 10 MG 15-30 MINS BEFORE MEALS THREE TIMES A DAY
     Route: 048
     Dates: start: 20070531, end: 20070606
  14. METOCLOPRAMIDE [Concomitant]
     Dosage: DOSE: 10 MG 15-30 MINS BEFORE MEALS THREE TIMES A DAY
     Route: 048
     Dates: start: 20070511, end: 20070524
  15. DEXAMETHASONE TAB [Concomitant]
     Dosage: DOSE: TWO 4 MG TABLETS WITH/AFTER MEALS
     Route: 048
     Dates: start: 20070712, end: 20070714
  16. DEXAMETHASONE TAB [Concomitant]
     Dosage: DOSE: TWO 4 MG TABLETS WITH/AFTER MEALS
     Route: 048
     Dates: start: 20070621, end: 20070623
  17. DEXAMETHASONE TAB [Concomitant]
     Dosage: DOSE: TWO 4 MG TABLETS WITH/AFTER MEALS
     Route: 048
     Dates: start: 20070531, end: 20070602
  18. DEXAMETHASONE TAB [Concomitant]
     Dosage: DOSE: TWO 4 MG TABLETS WITH/AFTER MEALS
     Route: 048
     Dates: start: 20070511, end: 20070513
  19. FOLIC ACID [Concomitant]
     Route: 048
     Dates: start: 20070712, end: 20070801
  20. FAMOTIDINE [Concomitant]
     Route: 048
     Dates: start: 20070712, end: 20070714
  21. FAMOTIDINE [Concomitant]
     Route: 048
     Dates: start: 20070621, end: 20070623
  22. FAMOTIDINE [Concomitant]
     Route: 048
     Dates: start: 20070531, end: 20070602
  23. FAMOTIDINE [Concomitant]
     Route: 048
     Dates: start: 20070511, end: 20070513
  24. TAMOXIFEN CITRATE [Concomitant]
     Dosage: DOSE QUANTITY: 1
     Dates: start: 20080222

REACTIONS (2)
  - GASTROENTERITIS [None]
  - HAEMANGIOMA [None]
